FAERS Safety Report 23144829 (Version 1)
Quarter: 2023Q4

REPORT INFORMATION
  Report Type: Spontaneous
  Country: DE (occurrence: DE)
  Receive Date: 20231103
  Receipt Date: 20231103
  Transmission Date: 20240110
  Serious: Yes (Other)
  Sender: FDA-Public Use
  Company Number: DE-UCBSA-2023052504

PATIENT
  Age: 19 Year
  Sex: Female

DRUGS (18)
  1. LEVETIRACETAM [Suspect]
     Active Substance: LEVETIRACETAM
     Indication: Petit mal epilepsy
     Dosage: 2500 MILLIGRAM PER DAY
  2. LEVETIRACETAM [Suspect]
     Active Substance: LEVETIRACETAM
     Indication: Generalised tonic-clonic seizure
  3. BRIVIACT [Suspect]
     Active Substance: BRIVARACETAM
     Indication: Generalised tonic-clonic seizure
     Dosage: 200 MILLIGRAM PER DAY
  4. BRIVIACT [Suspect]
     Active Substance: BRIVARACETAM
     Indication: Petit mal epilepsy
     Dosage: 200 MILLIGRAM ON ADMISSION
  5. BRIVIACT [Suspect]
     Active Substance: BRIVARACETAM
     Indication: Off label use
  6. LACOSAMIDE [Suspect]
     Active Substance: LACOSAMIDE
     Indication: Petit mal epilepsy
     Dosage: 400 MILLIGRAM PER DAY
  7. LACOSAMIDE [Suspect]
     Active Substance: LACOSAMIDE
     Indication: Generalised tonic-clonic seizure
     Dosage: 400 MILLIGRAM ON ADMISSION
  8. LACOSAMIDE [Suspect]
     Active Substance: LACOSAMIDE
     Indication: Off label use
  9. ETHOSUXIMIDE [Suspect]
     Active Substance: ETHOSUXIMIDE
     Indication: Petit mal epilepsy
     Dosage: 1500 MILLIGRAM PER DAY
  10. ETHOSUXIMIDE [Suspect]
     Active Substance: ETHOSUXIMIDE
     Indication: Generalised tonic-clonic seizure
     Dosage: 250 MILLIGRAM ON ADMISSION
  11. PERAMPANEL [Suspect]
     Active Substance: PERAMPANEL
     Indication: Petit mal epilepsy
     Dosage: UPTO 6 MILLIGRAM
  12. PERAMPANEL [Suspect]
     Active Substance: PERAMPANEL
     Indication: Generalised tonic-clonic seizure
  13. LAMOTRIGINE [Suspect]
     Active Substance: LAMOTRIGINE
     Indication: Petit mal epilepsy
     Dosage: 350 MILLIGRAM PER DAY
  14. LAMOTRIGINE [Suspect]
     Active Substance: LAMOTRIGINE
     Indication: Generalised tonic-clonic seizure
     Dosage: 200 MILLIGRAM ON ADMISSION
  15. CLOBAZAM [Suspect]
     Active Substance: CLOBAZAM
     Indication: Petit mal epilepsy
     Dosage: 15 MILLIGRAM ON ADMISSION
  16. CLOBAZAM [Suspect]
     Active Substance: CLOBAZAM
     Indication: Generalised tonic-clonic seizure
  17. TOPIRAMATE [Suspect]
     Active Substance: TOPIRAMATE
     Indication: Generalised tonic-clonic seizure
     Dosage: 100 MILLIGRAM PER DAY
  18. TOPIRAMATE [Suspect]
     Active Substance: TOPIRAMATE
     Indication: Petit mal epilepsy

REACTIONS (12)
  - Petit mal epilepsy [Unknown]
  - Generalised tonic-clonic seizure [Unknown]
  - Psychotic disorder [Unknown]
  - COVID-19 [Unknown]
  - Headache [Unknown]
  - Visual impairment [Unknown]
  - Gait disturbance [Unknown]
  - Paraesthesia [Unknown]
  - Performance status decreased [Unknown]
  - Adverse event [Unknown]
  - Drug ineffective [Unknown]
  - Off label use [Unknown]

NARRATIVE: CASE EVENT DATE: 20220401
